FAERS Safety Report 7531218-7 (Version None)
Quarter: 2011Q2

REPORT INFORMATION
  Report Type: 
  Country: None (occurrence: None)
  Receive Date: 20110608
  Receipt Date: 20110526
  Transmission Date: 20111010
  Serious: Yes (Life-Threatening, Hospitalization)
  Sender: FDA-Public Use
  Company Number: US-AMGEN-KDL246693

PATIENT
  Age: 53 Year
  Sex: Male
  Weight: 77 kg

DRUGS (7)
  1. BLINDED EPOETIN ALFA [Suspect]
     Indication: ACUTE MYOCARDIAL INFARCTION
     Dates: start: 20070926
  2. PLACEBO [Suspect]
     Indication: ACUTE MYOCARDIAL INFARCTION
     Dates: start: 20070926
  3. ASPIRIN [Concomitant]
     Dosage: 325 MG, UNK
     Route: 048
     Dates: start: 20070926
  4. PLAVIX [Concomitant]
     Dosage: UNK UNK, QD
     Route: 048
  5. NITROGLYCERIN [Concomitant]
     Dosage: 0.4 MG, PRN
     Route: 060
     Dates: start: 20070926
  6. METOPROLOL SUCCINATE [Concomitant]
     Dosage: 12.5 MG, BID
     Route: 048
     Dates: start: 20070926
  7. LIPITOR [Concomitant]
     Dosage: 40 MG, QD
     Route: 048
     Dates: start: 20070926

REACTIONS (8)
  - THROMBOSIS [None]
  - THROMBOSIS IN DEVICE [None]
  - ANAEMIA [None]
  - DISEASE PROGRESSION [None]
  - CORONARY ARTERY DISEASE [None]
  - MYOCARDIAL ISCHAEMIA [None]
  - DEVICE OCCLUSION [None]
  - MYOCARDIAL INFARCTION [None]
